FAERS Safety Report 8261489-3 (Version None)
Quarter: 2012Q2

REPORT INFORMATION
  Report Type: 
  Country: None (occurrence: None)
  Receive Date: 20120405
  Receipt Date: 20120402
  Transmission Date: 20120825
  Serious: Yes (Hospitalization)
  Sender: FDA-Public Use
  Company Number: US-PFIZER INC-2012083440

PATIENT
  Sex: Male
  Weight: 64.399 kg

DRUGS (5)
  1. NORVASC [Suspect]
     Indication: HYPERTENSION
     Dosage: 10 MG, 2X/DAY
     Route: 048
  2. GLUCOTROL [Suspect]
     Indication: DIABETES MELLITUS
     Dosage: 10 MG, 2X/DAY
     Route: 048
  3. NEURONTIN [Suspect]
     Indication: HERPES ZOSTER
     Dosage: 600 MG, 2X/DAY
  4. FENTANYL CITRATE [Suspect]
     Indication: NEUROPATHY PERIPHERAL
     Dosage: 0.5 MG, EVERY 72 HOURS
     Dates: start: 20110101
  5. JANUVIA [Suspect]
     Indication: DIABETES MELLITUS
     Dosage: 50 MG, DAILY
     Dates: start: 20110101

REACTIONS (1)
  - MALAISE [None]
